FAERS Safety Report 8242332-5 (Version None)
Quarter: 2012Q1

REPORT INFORMATION
  Report Type: 
  Country: None (occurrence: None)
  Receive Date: 20120314
  Receipt Date: 20110613
  Transmission Date: 20120608
  Serious: Yes (Other)
  Sender: FDA-Public Use
  Company Number: PHHY2011US46072

PATIENT
  Age: 63 Year
  Sex: Female

DRUGS (14)
  1. FANAPT [Suspect]
     Indication: BIPOLAR DISORDER
     Dosage: 6 MG, BID, ORAL
     Route: 048
     Dates: start: 20101129
  2. FERROUS SULFATE TAB [Concomitant]
  3. HYDROXYZINE [Concomitant]
  4. CLONAZEPAM [Concomitant]
  5. SYNTHROID [Concomitant]
  6. CELEBREX [Concomitant]
  7. NEURONTIN [Concomitant]
  8. NEXIUM [Concomitant]
  9. CALCIUM CARBONATE [Concomitant]
  10. TOPAMAX [Concomitant]
  11. MULTIVIT (VITAMINS NOS) [Concomitant]
  12. ASPIRIN [Concomitant]
  13. VITAMIN D [Concomitant]
  14. VITAMIN B12 [Concomitant]

REACTIONS (7)
  - DIZZINESS [None]
  - DEPRESSION [None]
  - POLLAKIURIA [None]
  - CELLULITIS [None]
  - INCONTINENCE [None]
  - DYSARTHRIA [None]
  - DRY MOUTH [None]
